FAERS Safety Report 17486684 (Version 1)
Quarter: 2020Q1

REPORT INFORMATION
  Report Type: Spontaneous
  Country: NL (occurrence: NL)
  Receive Date: 20200303
  Receipt Date: 20200303
  Transmission Date: 20200409
  Serious: Yes (Hospitalization)
  Sender: FDA-Public Use
  Company Number: NL-TEVA-2020-NL-1191812

PATIENT
  Sex: Female
  Weight: 2 kg

DRUGS (5)
  1. OLANZAPINE. [Suspect]
     Active Substance: OLANZAPINE
     Route: 065
  2. ZOPLICLON (ZOPICLONE) [Suspect]
     Active Substance: ZOPICLONE
     Route: 065
  3. PROMETHAZINE (FENERGAN) [Suspect]
     Active Substance: PROMETHAZINE HYDROCHLORIDE
     Route: 065
  4. CLOMIPRAMINE [Suspect]
     Active Substance: CLOMIPRAMINE
     Indication: MENTAL DISORDER
     Dosage: CONTROLLED-RELEASE TABLET, 75 MG (MILLIGRAM), 2 TIMES A DAY, 1
     Route: 065
  5. TEMAZEPAM. [Suspect]
     Active Substance: TEMAZEPAM
     Route: 065

REACTIONS (3)
  - Dystonia [Recovering/Resolving]
  - Maternal exposure during pregnancy [Unknown]
  - Hypertonia [Recovering/Resolving]
